FAERS Safety Report 6285525-9 (Version None)
Quarter: 2009Q3

REPORT INFORMATION
  Report Type: 
  Country: None (occurrence: None)
  Receive Date: 20090727
  Receipt Date: 20090716
  Transmission Date: 20100115
  Serious: Yes (Other)
  Sender: FDA-Public Use
  Company Number: PHHY2009MX29572

PATIENT
  Age: 68 Year
  Sex: Male

DRUGS (2)
  1. DIOVAN HCT [Suspect]
     Indication: HYPERTENSION
     Dosage: 160/12.5 MG
  2. DIOVAN HCT [Suspect]
     Dosage: 160/25 MG 1 TABLET PER DAY

REACTIONS (1)
  - MYOCARDIAL INFARCTION [None]
